FAERS Safety Report 15243123 (Version 1)
Quarter: 2018Q3

REPORT INFORMATION
  Report Type: Spontaneous
  Country: US (occurrence: US)
  Receive Date: 20180712
  Receipt Date: 20180712
  Transmission Date: 20181010
  Serious: Yes (Disabling)
  Sender: FDA-Public Use
  Company Number: None

PATIENT
  Age: 82 Year
  Sex: Female
  Weight: 53.1 kg

DRUGS (4)
  1. CIPRO [Suspect]
     Active Substance: CIPROFLOXACIN HYDROCHLORIDE
     Indication: URINARY TRACT INFECTION
     Dosage: ?          QUANTITY:1 DF DOSAGE FORM;?
     Route: 048
  2. MORPHINE [Concomitant]
     Active Substance: MORPHINE
  3. LIDOCAINE/KETAMINE [Concomitant]
  4. D?MANOOSE [Concomitant]

REACTIONS (4)
  - Abdominal pain upper [None]
  - Condition aggravated [None]
  - Disturbance in attention [None]
  - Myalgia [None]

NARRATIVE: CASE EVENT DATE: 20180709
